FAERS Safety Report 12883459 (Version 1)
Quarter: 2016Q4

REPORT INFORMATION
  Report Type: Report from Study
  Country: US (occurrence: US)
  Receive Date: 20161025
  Receipt Date: 20161025
  Transmission Date: 20170207
  Serious: Yes (Hospitalization)
  Sender: FDA-Public Use
  Company Number: US-ACTELION-A-US2016-144074

PATIENT
  Age: 78 Year
  Sex: Female

DRUGS (12)
  1. SIMVASTATIN. [Concomitant]
     Active Substance: SIMVASTATIN
  2. ENALAPRIL [Concomitant]
     Active Substance: ENALAPRIL
  3. SILDENAFIL. [Concomitant]
     Active Substance: SILDENAFIL
  4. METOPROLOL. [Concomitant]
     Active Substance: METOPROLOL
  5. OPSUMIT [Suspect]
     Active Substance: MACITENTAN
     Indication: PULMONARY ARTERIAL HYPERTENSION
     Dosage: 10 MG, BID
     Route: 048
     Dates: start: 20150714
  6. ADEMPAS [Concomitant]
     Active Substance: RIOCIGUAT
  7. BREO ELLIPTA [Concomitant]
     Active Substance: FLUTICASONE FUROATE\VILANTEROL TRIFENATATE
  8. LANTUS [Concomitant]
     Active Substance: INSULIN GLARGINE
  9. POTASSIUM [Concomitant]
     Active Substance: POTASSIUM
  10. WARFARIN [Concomitant]
     Active Substance: WARFARIN
  11. METFORMIN [Concomitant]
     Active Substance: METFORMIN HYDROCHLORIDE
  12. LASIX [Concomitant]
     Active Substance: FUROSEMIDE

REACTIONS (3)
  - Fall [Recovered/Resolved]
  - Contusion [Recovered/Resolved]
  - Blood glucose decreased [Recovered/Resolved]

NARRATIVE: CASE EVENT DATE: 20161008
